FAERS Safety Report 7711976-9 (Version None)
Quarter: 2011Q3

REPORT INFORMATION
  Report Type: 
  Country: None (occurrence: None)
  Receive Date: 20110826
  Receipt Date: 20110819
  Transmission Date: 20111222
  Serious: Yes (Death, Other)
  Sender: FDA-Public Use
  Company Number: FR-MPIJNJ-2011-03006

PATIENT

DRUGS (6)
  1. VELCADE [Suspect]
     Dosage: 1.3 MG/M2, UNK
     Route: 042
     Dates: start: 20110526
  2. GEMCITABINE [Concomitant]
     Indication: B-CELL LYMPHOMA
     Dosage: 1250 MG, UNK
     Route: 042
     Dates: start: 20110526
  3. OXALIPLATIN [Concomitant]
     Indication: B-CELL LYMPHOMA
     Dosage: 1000 MG, UNK
     Route: 042
  4. CYTARABINE [Concomitant]
     Indication: B-CELL LYMPHOMA
     Dosage: 50 MG, UNK
  5. DEXAMETHASONE [Concomitant]
     Indication: B-CELL LYMPHOMA
     Dosage: 40 MG, UNK
     Route: 048
     Dates: start: 20110526
  6. VELCADE [Suspect]
     Indication: B-CELL LYMPHOMA
     Dosage: UNK
     Route: 037
     Dates: start: 20110528, end: 20110528

REACTIONS (3)
  - CONFUSIONAL STATE [None]
  - ACUTE PULMONARY OEDEMA [None]
  - INCORRECT ROUTE OF DRUG ADMINISTRATION [None]
